FAERS Safety Report 15356393 (Version 1)
Quarter: 2018Q3

REPORT INFORMATION
  Report Type: Spontaneous
  Country: US (occurrence: US)
  Receive Date: 20180906
  Receipt Date: 20180906
  Transmission Date: 20181010
  Serious: No
  Sender: FDA-Public Use
  Company Number: US-FERRINGPH-2017FE04384

PATIENT
  Sex: Female

DRUGS (1)
  1. PREPOPIK [Suspect]
     Active Substance: ANHYDROUS CITRIC ACID\MAGNESIUM OXIDE\SODIUM PICOSULFATE
     Indication: COLONOSCOPY
     Dosage: 2 SACHETS
     Route: 065

REACTIONS (3)
  - Chills [Recovered/Resolved]
  - Muscle spasms [Recovered/Resolved]
  - Electrolyte imbalance [Recovered/Resolved]
